FAERS Safety Report 13161483 (Version 2)
Quarter: 2017Q1

REPORT INFORMATION
  Report Type: Report from Study
  Country: DE (occurrence: DE)
  Receive Date: 20170130
  Receipt Date: 20170130
  Transmission Date: 20170428
  Serious: Yes (Hospitalization)
  Sender: FDA-Public Use
  Company Number: DE-CELGENEUS-DEU-2017013992

PATIENT
  Age: 64 Year
  Sex: Female
  Weight: 113 kg

DRUGS (7)
  1. METFORMIN [Concomitant]
     Active Substance: METFORMIN HYDROCHLORIDE
     Indication: DIABETES MELLITUS
     Route: 065
     Dates: start: 2006
  2. PANTOZOL [Concomitant]
     Active Substance: PANTOPRAZOLE SODIUM
     Indication: PROPHYLAXIS
     Route: 065
     Dates: start: 201609
  3. FORTECORTIN [Concomitant]
     Active Substance: DEXAMETHASONE
     Indication: DIZZINESS
     Route: 065
     Dates: start: 20161101
  4. ONDANSETRON [Concomitant]
     Active Substance: ONDANSETRON
     Indication: NAUSEA
     Route: 065
     Dates: start: 20161101
  5. FRAGMINP [Concomitant]
     Indication: THROMBOSIS PROPHYLAXIS
     Route: 065
     Dates: start: 20170103, end: 20170110
  6. ABRAXANE [Suspect]
     Active Substance: PACLITAXEL
     Indication: BREAST CANCER
     Dosage: LAST DOSE :228MG
     Route: 065
     Dates: start: 20161122, end: 20161129
  7. AMPHOMORONAL SUSPENSION [Concomitant]
     Indication: CANDIDA INFECTION
     Route: 065
     Dates: start: 20161227

REACTIONS (3)
  - Muscular weakness [Recovered/Resolved]
  - Muscular weakness [Not Recovered/Not Resolved]
  - Vertigo [Not Recovered/Not Resolved]

NARRATIVE: CASE EVENT DATE: 20161130
